FAERS Safety Report 6173438-2 (Version None)
Quarter: 2009Q2

REPORT INFORMATION
  Report Type: 
  Country: None (occurrence: None)
  Receive Date: 20090430
  Receipt Date: 20090421
  Transmission Date: 20091009
  Serious: Yes (Death, Hospitalization)
  Sender: FDA-Public Use
  Company Number: ID-JNJFOC-20090402996

PATIENT
  Age: 61 Year
  Sex: Male

DRUGS (9)
  1. REMICADE [Suspect]
     Route: 042
  2. REMICADE [Suspect]
     Route: 042
  3. REMICADE [Suspect]
     Indication: COLITIS ULCERATIVE
     Route: 042
  4. REMICADE [Suspect]
     Indication: RHEUMATOID ARTHRITIS
     Dosage: 4 INFUSIONS
     Route: 042
  5. SULCOLON [Concomitant]
     Indication: RHEUMATOID ARTHRITIS
     Route: 048
  6. GORALGIN [Concomitant]
     Indication: ANALGESIA
     Route: 048
  7. ASCARDIA [Concomitant]
     Indication: ANTICOAGULANT THERAPY
     Route: 048
  8. ALLOPURINOL [Concomitant]
     Indication: PROPHYLAXIS
     Route: 048
  9. CPG [Concomitant]
     Indication: ANTICOAGULANT THERAPY
     Route: 048

REACTIONS (3)
  - HEADACHE [None]
  - HYPOTENSION [None]
  - LOSS OF CONSCIOUSNESS [None]
